FAERS Safety Report 5665098-1 (Version None)
Quarter: 2008Q1

REPORT INFORMATION
  Report Type: 
  Country: None (occurrence: None)
  Receive Date: 20080314
  Receipt Date: 20080304
  Transmission Date: 20080703
  Serious: Yes (Other)
  Sender: FDA-Public Use
  Company Number: US-PFIZER INC-2008021040

PATIENT
  Sex: Female
  Weight: 53.181 kg

DRUGS (4)
  1. DILANTIN [Suspect]
     Indication: EPILEPSY
  2. DILANTIN [Suspect]
     Indication: EPILEPSY
  3. PRIMIDONE [Suspect]
     Indication: EPILEPSY
  4. ACTONEL [Concomitant]

REACTIONS (6)
  - AURA [None]
  - CONVULSION [None]
  - FALL [None]
  - INTENTIONAL DRUG MISUSE [None]
  - JOINT INJURY [None]
  - SOMNOLENCE [None]
